FAERS Safety Report 7825124-8 (Version None)
Quarter: 2011Q4

REPORT INFORMATION
  Report Type: 
  Country: None (occurrence: None)
  Receive Date: 20111019
  Receipt Date: 20111011
  Transmission Date: 20120403
  Serious: Yes (Hospitalization)
  Sender: FDA-Public Use
  Company Number: US-JNJFOC-20111005316

PATIENT
  Age: 63 Year
  Sex: Male
  Weight: 97.52 kg

DRUGS (1)
  1. NUCYNTA [Suspect]
     Indication: PROCEDURAL PAIN
     Dosage: ONCE EVERY 6 HOURS PRN
     Route: 048
     Dates: start: 20110615

REACTIONS (6)
  - AGGRESSION [None]
  - DISORIENTATION [None]
  - AKATHISIA [None]
  - BALANCE DISORDER [None]
  - SEROTONIN SYNDROME [None]
  - DYSARTHRIA [None]
